FAERS Safety Report 25449407 (Version 1)
Quarter: 2025Q2

REPORT INFORMATION
  Report Type: Spontaneous
  Country: GR (occurrence: GR)
  Receive Date: 20250618
  Receipt Date: 20250618
  Transmission Date: 20250717
  Serious: Yes (Hospitalization, Other)
  Sender: CELLTRION
  Company Number: GR-AMGEN-GRCSP2025009146

PATIENT

DRUGS (3)
  1. BEVACIZUMAB [Suspect]
     Active Substance: BEVACIZUMAB
     Indication: Colon neoplasm
     Route: 065
  2. OXALIPLATIN [Suspect]
     Active Substance: OXALIPLATIN
     Indication: Colon neoplasm
     Route: 065
  3. CAPECITABINE [Concomitant]
     Active Substance: CAPECITABINE

REACTIONS (6)
  - Ocular icterus [Unknown]
  - Extravascular haemolysis [Recovering/Resolving]
  - Colon cancer [Unknown]
  - Hyperbilirubinaemia [Unknown]
  - Warm autoimmune haemolytic anaemia [Unknown]
  - Thrombocytopenia [Unknown]
